FAERS Safety Report 9660860 (Version 3)
Quarter: 2014Q3

REPORT INFORMATION
  Report Type: Report from Study
  Country: ES (occurrence: ES)
  Receive Date: 20131031
  Receipt Date: 20140912
  Transmission Date: 20150326
  Serious: Yes (Death, Hospitalization)
  Sender: FDA-Public Use
  Company Number: ES-ABBVIE-13P-144-1132730-00

PATIENT
  Age: 37 Year
  Sex: Female

DRUGS (10)
  1. HUMIRA [Suspect]
     Active Substance: ADALIMUMAB
     Route: 058
     Dates: start: 20090202, end: 20130510
  2. PREDNISONE. [Concomitant]
     Active Substance: PREDNISONE
     Indication: CHEILITIS GRANULOMATOSA
     Dates: start: 20130515, end: 20130628
  3. PREDNISONE. [Concomitant]
     Active Substance: PREDNISONE
     Indication: ANAL FISTULA
  4. HUMIRA [Suspect]
     Active Substance: ADALIMUMAB
     Dosage: WEEK 2
     Route: 058
  5. HYDROXYCHLOROQUINE [Concomitant]
     Active Substance: HYDROXYCHLOROQUINE
     Indication: CHEILITIS GRANULOMATOSA
     Dates: start: 20130315
  6. MEROPENEM. [Concomitant]
     Active Substance: MEROPENEM
     Indication: PELVIC ABSCESS
     Dates: start: 20130509, end: 20130515
  7. MEROPENEM. [Concomitant]
     Active Substance: MEROPENEM
     Dates: start: 20130604, end: 20130620
  8. HUMIRA [Suspect]
     Active Substance: ADALIMUMAB
     Indication: CROHN^S DISEASE
     Dosage: BASELINE
     Route: 058
     Dates: start: 20060227, end: 20060227
  9. PREDNISONE. [Concomitant]
     Active Substance: PREDNISONE
     Indication: PELVIC ABSCESS
     Dates: start: 20121017, end: 20121217
  10. PREDNISONE. [Concomitant]
     Active Substance: PREDNISONE
     Indication: GASTROINTESTINAL INFLAMMATION
     Dates: start: 20090928, end: 20100122

REACTIONS (6)
  - Renal failure acute [Fatal]
  - Rectal haemorrhage [Fatal]
  - Rectal cancer [Fatal]
  - Obstructive uropathy [Fatal]
  - Transitional cell carcinoma [Fatal]
  - Rectal cancer [Fatal]

NARRATIVE: CASE EVENT DATE: 20130603
